FAERS Safety Report 10260946 (Version 1)
Quarter: 2014Q2

REPORT INFORMATION
  Report Type: Spontaneous
  Country: ES (occurrence: None)
  Receive Date: 20140623
  Receipt Date: 20140623
  Transmission Date: 20141212
  Serious: Yes (Other)
  Sender: FDA-Public Use
  Company Number: 2014ES0148

PATIENT
  Age: 58 Year
  Sex: Male

DRUGS (5)
  1. KINERET (ANAKINRA), NOT AVAILABLE [Suspect]
     Indication: GOUT
     Route: 058
     Dates: start: 20131209
  2. FEBUXOSTAT [Suspect]
     Indication: GOUT
     Route: 048
     Dates: start: 20131209
  3. MOFETIL [Concomitant]
  4. BASILIMAB [Concomitant]
  5. METILPREDNISOLONE [Concomitant]

REACTIONS (2)
  - Disseminated intravascular coagulation [None]
  - Kidney transplant rejection [None]
